FAERS Safety Report 5567365-9 (Version None)
Quarter: 2007Q4

REPORT INFORMATION
  Report Type: 
  Country: None (occurrence: None)
  Receive Date: 20071214
  Receipt Date: 20071211
  Transmission Date: 20080405
  Serious: Yes (Other)
  Sender: FDA-Public Use
  Company Number: POMP-11293

PATIENT
  Age: 2 Year
  Sex: Female
  Weight: 9.9 kg

DRUGS (4)
  1. MYOZYME [Suspect]
     Indication: GLYCOGEN STORAGE DISEASE TYPE II
     Dosage: 20 MG/KG Q2WKS IV
     Route: 042
     Dates: start: 20061122
  2. EVITOL [Concomitant]
  3. VITAMIN B COMPLEX CAP [Concomitant]
  4. COENZYME Q10 [Concomitant]

REACTIONS (2)
  - EPILEPSY [None]
  - PARTIAL SEIZURES [None]
